FAERS Safety Report 5774420-7 (Version None)
Quarter: 2008Q2

REPORT INFORMATION
  Report Type: 
  Country: None (occurrence: None)
  Receive Date: 20080616
  Receipt Date: 20080605
  Transmission Date: 20081010
  Serious: Yes (Other)
  Sender: FDA-Public Use
  Company Number: CA-WYE-H04421908

PATIENT
  Age: 70 Year
  Sex: Female

DRUGS (17)
  1. PANTOPRAZOLE SODIUM [Suspect]
     Indication: GASTROOESOPHAGEAL REFLUX DISEASE
     Dates: start: 20070911, end: 20071231
  2. PANTOPRAZOLE SODIUM [Suspect]
     Dates: start: 20080201, end: 20080510
  3. ACTONEL [Concomitant]
     Indication: OSTEOPENIA
     Dates: start: 20071105, end: 20071106
  4. CALCIUM [Concomitant]
  5. NEUTRAL [Concomitant]
  6. COLLAGEN [Concomitant]
  7. VITAMIN D3 [Concomitant]
  8. HORSE CHESTNUT [Concomitant]
     Dosage: UNKNOWN DOSE TABLET AND OINTMENT
  9. CIPROFLOXACIN [Concomitant]
     Dates: start: 20080118, end: 20080101
  10. BIAXIN [Concomitant]
  11. CIPRO [Concomitant]
     Dates: start: 20080409, end: 20080411
  12. ALBUTEROL [Concomitant]
     Dosage: PRN
     Dates: start: 20040101
  13. TRIAZOLAM [Concomitant]
     Dosage: 0.125 MG PRN
  14. MIACALCIN [Concomitant]
     Indication: OSTEOPOROSIS
     Dosage: UNKNOWN
     Dates: start: 20030323
  15. DICETEL [Concomitant]
     Dates: start: 20050628
  16. VIOXX [Concomitant]
     Indication: JOINT INJURY
     Dates: start: 20040801
  17. PERCOCET [Concomitant]
     Indication: UPPER LIMB FRACTURE
     Dosage: 0.5 DOSEAGE FORM ONE IN 6 HOURS
     Dates: start: 20050218

REACTIONS (4)
  - ARTHRALGIA [None]
  - MOBILITY DECREASED [None]
  - MYALGIA [None]
  - SENSORY DISTURBANCE [None]
